FAERS Safety Report 5287386-3 (Version None)
Quarter: 2007Q1

REPORT INFORMATION
  Report Type: 
  Country: None (occurrence: None)
  Receive Date: 20070116
  Receipt Date: 20061107
  Transmission Date: 20070707
  Serious: No
  Sender: FDA-Public Use
  Company Number: 2006SP003958

PATIENT
  Age: 34 Year
  Sex: Female
  Weight: 62.1428 kg

DRUGS (1)
  1. LUNESTA [Suspect]
     Indication: INSOMNIA
     Dosage: 2 MG;1X;ORAL
     Route: 048
     Dates: start: 20061027, end: 20061027

REACTIONS (2)
  - DIZZINESS [None]
  - NAUSEA [None]
